FAERS Safety Report 8799273 (Version 1)
Quarter: 2012Q4

REPORT INFORMATION
  Report Type: Spontaneous
  Country: ES (occurrence: None)
  Receive Date: 20120914
  Receipt Date: 20120914
  Transmission Date: 20130627
  Serious: Yes (Other)
  Sender: FDA-Public Use
  Company Number: 1404150

PATIENT

DRUGS (2)
  1. OXALIPLATIN [Suspect]
     Indication: DRUG USE FOR UNKNOWN INDICATION
  2. GEMCITABINE [Concomitant]

REACTIONS (2)
  - Respiratory distress [None]
  - Aphonia [None]
